FAERS Safety Report 4530001-4 (Version None)
Quarter: 2004Q4

REPORT INFORMATION
  Report Type: 
  Country: None (occurrence: None)
  Receive Date: 20041217
  Receipt Date: 20041206
  Transmission Date: 20050328
  Serious: Yes (Hospitalization)
  Sender: FDA-Public Use
  Company Number: JP-JNJFOC-20041200936

PATIENT
  Sex: Female

DRUGS (2)
  1. RISPERDAL [Suspect]
     Indication: SCHIZOPHRENIA
     Route: 049
     Dates: end: 20041001
  2. OLANZAPINE [Suspect]
     Indication: SCHIZOPHRENIA
     Dosage: 15-20 MG/DAILY
     Route: 049
     Dates: end: 20041001

REACTIONS (3)
  - CARDIAC FAILURE ACUTE [None]
  - DRUG INTERACTION [None]
  - NEUROLEPTIC MALIGNANT SYNDROME [None]
